FAERS Safety Report 9478512 (Version 2)
Quarter: 2013Q3

REPORT INFORMATION
  Report Type: Spontaneous
  Country: FI (occurrence: FI)
  Receive Date: 20130827
  Receipt Date: 20130904
  Transmission Date: 20140515
  Serious: Yes (Hospitalization)
  Sender: FDA-Public Use
  Company Number: FI-BAYER-2013-102105

PATIENT
  Age: 32 Year
  Sex: Female

DRUGS (1)
  1. MIRENA [Suspect]
     Indication: CONTRACEPTION
     Dosage: 20 MCG/24HR, CONT
     Route: 015
     Dates: start: 2011, end: 20130820

REACTIONS (9)
  - Pregnancy with contraceptive device [Not Recovered/Not Resolved]
  - Haemorrhage in pregnancy [None]
  - Haemorrhagic anaemia [None]
  - Amenorrhoea [None]
  - Drug ineffective [None]
  - Syncope [None]
  - Abortion spontaneous [Not Recovered/Not Resolved]
  - Retained products of conception [Not Recovered/Not Resolved]
  - Device expulsion [None]
